FAERS Safety Report 10219856 (Version 2)
Quarter: 2014Q2

REPORT INFORMATION
  Report Type: Spontaneous
  Country: FR (occurrence: FR)
  Receive Date: 20140605
  Receipt Date: 20140619
  Transmission Date: 20141212
  Serious: Yes (Life-Threatening, Hospitalization, Other)
  Sender: FDA-Public Use
  Company Number: FR-PFIZER INC-2014151029

PATIENT
  Age: 19 Year
  Sex: Female

DRUGS (2)
  1. AMLOR [Suspect]
     Dosage: 20 DF, SINGLE
     Route: 048
     Dates: start: 20140405, end: 20140405
  2. XANAX [Suspect]
     Dosage: 28 DF, SINGLE

REACTIONS (5)
  - Intentional overdose [Recovered/Resolved]
  - Acute pulmonary oedema [Recovered/Resolved]
  - Hypotension [Recovered/Resolved]
  - Tachycardia [Recovered/Resolved]
  - Somnolence [Recovered/Resolved]
